FAERS Safety Report 21301940 (Version 1)
Quarter: 2022Q3

REPORT INFORMATION
  Report Type: Spontaneous
  Country: US (occurrence: None)
  Receive Date: 20220906
  Receipt Date: 20220906
  Transmission Date: 20221026
  Serious: No
  Sender: FDA-Public Use
  Company Number: None

PATIENT
  Sex: 0

DRUGS (1)
  1. OLMESARTAN MEDOXOMIL [Suspect]
     Active Substance: OLMESARTAN MEDOXOMIL
     Dosage: FREQUENCY : DAILY;?
     Route: 048

REACTIONS (7)
  - Hypoaesthesia oral [None]
  - Feeling abnormal [None]
  - Dizziness [None]
  - Vision blurred [None]
  - Product quality issue [None]
  - Product quality issue [None]
  - Manufacturing issue [None]

NARRATIVE: CASE EVENT DATE: 20220905
